FAERS Safety Report 11795977 (Version 1)
Quarter: 2015Q4

REPORT INFORMATION
  Report Type: Report from Study
  Country: US (occurrence: US)
  Receive Date: 20151203
  Receipt Date: 20151203
  Transmission Date: 20160305
  Serious: Yes (Life-Threatening, Hospitalization)
  Sender: FDA-Public Use
  Company Number: US-ROCHE-1666956

PATIENT
  Age: 34 Year
  Sex: Female

DRUGS (2)
  1. BEVACIZUMAB [Suspect]
     Active Substance: BEVACIZUMAB
     Indication: BREAST CANCER METASTATIC
     Dosage: OVER 30-90 MINUTES ON DAY 1 AND 15 (28 DAYS CYCLE) (LAST DOSE ADMINISTRATION PRIOR TO SAE: 13/MAY/20
     Route: 042
     Dates: start: 20100331
  2. IXABEPILONE [Suspect]
     Active Substance: IXABEPILONE
     Indication: BREAST CANCER METASTATIC
     Dosage: OVER 1 HOUR ON DAYS 1, 8 AND 15 (28 DAYS CYCLE) (LAST DOSE ADMINISTRATION PRIOR TO SAE: 13/MAY/2010)
     Route: 042
     Dates: start: 20100331

REACTIONS (10)
  - Anaemia [Recovered/Resolved]
  - International normalised ratio increased [Recovered/Resolved]
  - Hypoalbuminaemia [Recovered/Resolved]
  - Hypocalcaemia [Recovered/Resolved]
  - Neutrophil count decreased [Recovered/Resolved]
  - Lymphocyte count decreased [Recovered/Resolved]
  - Pain [Recovered/Resolved]
  - Infection [Recovered/Resolved]
  - White blood cell count decreased [Recovered/Resolved]
  - Hyperglycaemia [Recovered/Resolved]

NARRATIVE: CASE EVENT DATE: 20100606
